FAERS Safety Report 20145962 (Version 1)
Quarter: 2021Q4

REPORT INFORMATION
  Report Type: Spontaneous
  Country: US (occurrence: US)
  Receive Date: 20211203
  Receipt Date: 20211203
  Transmission Date: 20220304
  Serious: Yes (Hospitalization, Other)
  Sender: FDA-Public Use
  Company Number: US-TEVA-2021-US-1982092

PATIENT
  Age: 86 Year
  Sex: Male

DRUGS (4)
  1. METOPROLOL SUCCINATE [Suspect]
     Active Substance: METOPROLOL SUCCINATE
     Indication: Hypertension
     Route: 065
  2. LOSARTAN [Concomitant]
     Active Substance: LOSARTAN
     Route: 065
  3. TAMSULOSIN [Concomitant]
     Active Substance: TAMSULOSIN
     Route: 065
  4. DUTASTERIDE [Concomitant]
     Active Substance: DUTASTERIDE
     Route: 065

REACTIONS (6)
  - Urinary tract obstruction [Recovering/Resolving]
  - Urinary retention [Unknown]
  - Prostatomegaly [Unknown]
  - Heart rate increased [Unknown]
  - Benign prostatic hyperplasia [Unknown]
  - Urine output decreased [Recovering/Resolving]

NARRATIVE: CASE EVENT DATE: 20190101
